FAERS Safety Report 19589122 (Version 2)
Quarter: 2021Q3

REPORT INFORMATION
  Report Type: Report from Study
  Country: PL (occurrence: PL)
  Receive Date: 20210721
  Receipt Date: 20210801
  Transmission Date: 20211014
  Serious: Yes (Death)
  Sender: FDA-Public Use
  Company Number: PL-KARYOPHARM-2021KPT000933

PATIENT
  Age: 71 Year
  Sex: Female

DRUGS (11)
  1. HEVIRAN [ACICLOVIR] [Concomitant]
     Active Substance: ACYCLOVIR
  2. MILURIT [Concomitant]
     Active Substance: ALLOPURINOL
  3. SELINEXOR [Suspect]
     Active Substance: SELINEXOR
     Indication: PLASMA CELL MYELOMA
     Dosage: UNK
     Route: 048
     Dates: start: 20210105, end: 20210202
  4. BISEPTOL [Concomitant]
     Active Substance: SULFAMETHOXAZOLE\TRIMETHOPRIM
  5. BISOCARD [Concomitant]
     Active Substance: BISOPROLOL
  6. ATORIS [Concomitant]
     Active Substance: ATORVASTATIN CALCIUM
  7. DEXAMETHASONE. [Concomitant]
     Active Substance: DEXAMETHASONE
     Indication: PLASMA CELL MYELOMA
  8. OSPORIL [Concomitant]
     Active Substance: ZOLEDRONIC ACID
  9. ENDOXAN [CYCLOPHOSPHAMIDE] [Concomitant]
     Active Substance: CYCLOPHOSPHAMIDE
  10. LYRICA [Concomitant]
     Active Substance: PREGABALIN
  11. TORAMIDE [Concomitant]

REACTIONS (1)
  - Plasma cell myeloma [Fatal]
